FAERS Safety Report 8592850-5 (Version None)
Quarter: 2012Q3

REPORT INFORMATION
  Report Type: 
  Country: None (occurrence: None)
  Receive Date: 20120814
  Receipt Date: 20120801
  Transmission Date: 20120928
  Serious: Yes (Hospitalization, Other)
  Sender: FDA-Public Use
  Company Number: JP-ROCHE-1029600

PATIENT
  Sex: Male

DRUGS (28)
  1. ACTEMRA [Suspect]
     Route: 041
     Dates: start: 20090323, end: 20100128
  2. ACTEMRA [Suspect]
     Dosage: DOSAGE IS UNCERTAIN.
     Route: 041
     Dates: start: 20100101
  3. PREDNISOLONE [Suspect]
     Indication: RHEUMATOID ARTHRITIS
     Route: 048
     Dates: end: 20080703
  4. RHEUMATREX [Concomitant]
     Indication: RHEUMATOID ARTHRITIS
     Dosage: THREE TIMES A WEEK
     Route: 048
     Dates: start: 20080606, end: 20080827
  5. RABEPRAZOLE SODIUM [Concomitant]
     Route: 048
  6. DOXAZOSIN MESYLATE [Concomitant]
     Indication: HYPERTENSION
     Route: 048
  7. RISPERDAL [Concomitant]
     Route: 048
  8. RHEUMATREX [Concomitant]
     Dosage: THREE TIMES A WEEK
     Route: 048
     Dates: start: 20080828
  9. WARFARIN SODIUM [Concomitant]
     Indication: DEEP VEIN THROMBOSIS
     Route: 048
  10. RABEPRAZOLE SODIUM [Concomitant]
     Indication: PROPHYLAXIS
     Route: 048
  11. VITAMIN B12 [Concomitant]
     Indication: HYPOAESTHESIA
     Route: 048
  12. AMARYL [Concomitant]
     Indication: DIABETES MELLITUS
     Route: 048
  13. CLARITHROMYCIN [Concomitant]
     Indication: BRONCHITIS CHRONIC
     Route: 048
  14. NORVASC [Concomitant]
     Route: 048
  15. PREDNISOLONE [Suspect]
     Route: 048
     Dates: start: 20080704, end: 20090114
  16. PREDNISOLONE [Suspect]
     Route: 048
  17. VOLTAREN-XR [Concomitant]
     Indication: RHEUMATOID ARTHRITIS
     Route: 048
  18. BASEN [Concomitant]
     Indication: DIABETES MELLITUS
     Route: 048
  19. ETODOLAC [Concomitant]
     Route: 048
  20. MAGNESIUM OXIDE [Concomitant]
     Route: 048
  21. ACTEMRA [Suspect]
     Route: 041
     Dates: start: 20090223, end: 20090223
  22. GASLON N [Concomitant]
     Indication: PROPHYLAXIS
     Route: 048
  23. ACTEMRA [Suspect]
     Indication: RHEUMATOID ARTHRITIS
     Route: 041
     Dates: start: 20071225, end: 20090105
  24. PREDNISOLONE [Suspect]
     Route: 048
     Dates: start: 20090115
  25. TOFRANIL [Concomitant]
     Route: 048
  26. MICARDIS [Concomitant]
     Indication: HYPERTENSION
     Route: 048
  27. ALENDRONATE SODIUM [Concomitant]
     Indication: PROPHYLAXIS
     Route: 048
  28. ALFAROL [Concomitant]
     Route: 048

REACTIONS (2)
  - RIB FRACTURE [None]
  - NASOPHARYNGITIS [None]
